FAERS Safety Report 4720790-8 (Version None)
Quarter: 2005Q3

REPORT INFORMATION
  Report Type: 
  Country: None (occurrence: None)
  Receive Date: 20050721
  Receipt Date: 20050711
  Transmission Date: 20060218
  Serious: Yes (Life-Threatening, Hospitalization)
  Sender: FDA-Public Use
  Company Number: ZA-ABBOTT-05P-143-0305464-00

PATIENT
  Sex: Male
  Weight: 15 kg

DRUGS (7)
  1. SEVOFLURANE [Suspect]
     Indication: ANAESTHESIA
     Dosage: UNKNOWN
     Route: 065
     Dates: start: 20050614, end: 20050614
  2. PAINSTOP SYRUP [Suspect]
     Indication: PREMEDICATION
     Dates: start: 20050614, end: 20050614
  3. NITROUS OXIDE [Suspect]
     Indication: ANAESTHESIA
     Route: 065
  4. ELIDEL [Suspect]
     Indication: DERMATITIS ATOPIC
     Dosage: NOT REPORTED
     Route: 061
     Dates: start: 20040827
  5. PETHIDINE [Suspect]
     Indication: ANALGESIC EFFECT
     Dosage: UNKNOWN
     Route: 065
     Dates: start: 20050614, end: 20050614
  6. OXYGEN [Suspect]
     Indication: ANAESTHESIA
  7. CLARITHROMYCIN [Concomitant]
     Indication: DRUG USE FOR UNKNOWN INDICATION
     Dosage: UNKNOWN
     Route: 065
     Dates: start: 20050614

REACTIONS (4)
  - CYANOSIS [None]
  - EYE ROLLING [None]
  - SEDATION [None]
  - TONGUE DISORDER [None]
